FAERS Safety Report 15028444 (Version 4)
Quarter: 2019Q1

REPORT INFORMATION
  Report Type: Spontaneous
  Country: BR (occurrence: BR)
  Receive Date: 20180619
  Receipt Date: 20190122
  Transmission Date: 20190417
  Serious: Yes (Hospitalization)
  Sender: FDA-Public Use
  Company Number: BR-GLAXOSMITHKLINE-BR2018GSK088580

PATIENT
  Age: 31 Year
  Sex: Male
  Weight: 73 kg

DRUGS (3)
  1. BENLYSTA [Suspect]
     Active Substance: BELIMUMAB
     Indication: SYSTEMIC LUPUS ERYTHEMATOSUS
     Dosage: UNK
     Dates: start: 20180223
  2. PREDNISONE. [Concomitant]
     Active Substance: PREDNISONE
     Indication: IMMUNE SYSTEM DISORDER
     Dosage: 10 MG, QD
  3. MICOFENOLATO [Concomitant]
     Active Substance: MYCOPHENOLATE MOFETIL
     Indication: IMMUNE SYSTEM DISORDER
     Dosage: 500 MG, UNK

REACTIONS (7)
  - Foot fracture [Unknown]
  - Fall [Recovered/Resolved]
  - Inappropriate schedule of product administration [Recovered/Resolved]
  - Balance disorder [Unknown]
  - Urinary tract infection [Recovered/Resolved]
  - Peripheral swelling [Unknown]
  - Product dose omission [Not Recovered/Not Resolved]

NARRATIVE: CASE EVENT DATE: 20180525
